FAERS Safety Report 9210476 (Version 2)
Quarter: 2013Q3

REPORT INFORMATION
  Report Type: Spontaneous
  Country: FR (occurrence: FR)
  Receive Date: 20130404
  Receipt Date: 20130731
  Transmission Date: 20140515
  Serious: Yes (Hospitalization)
  Sender: FDA-Public Use
  Company Number: FR-JNJFOC-20130315393

PATIENT
  Age: 98 Year
  Sex: Male

DRUGS (5)
  1. HALDOL [Suspect]
     Indication: HALLUCINATION
     Route: 048
     Dates: start: 20130220, end: 20130221
  2. OXYCONTIN [Suspect]
     Indication: PAIN
     Route: 048
     Dates: start: 20130220, end: 20130221
  3. OXYNORM [Suspect]
     Indication: PAIN
     Dosage: ONE CAPSULE
     Route: 048
     Dates: start: 20130220, end: 20130221
  4. NARCAN [Suspect]
     Indication: PRODUCT USED FOR UNKNOWN INDICATION
     Route: 065
  5. CORTANCYL [Concomitant]
     Indication: PRODUCT USED FOR UNKNOWN INDICATION
     Route: 065
     Dates: start: 20130221

REACTIONS (4)
  - Bradypnoea [Recovered/Resolved]
  - Depressed level of consciousness [Recovered/Resolved]
  - Miosis [Recovered/Resolved]
  - Bradyphrenia [Recovered/Resolved]
